FAERS Safety Report 19505142 (Version 1)
Quarter: 2021Q3

REPORT INFORMATION
  Report Type: Spontaneous
  Country: US (occurrence: US)
  Receive Date: 20210707
  Receipt Date: 20210707
  Transmission Date: 20211014
  Serious: Yes (Other)
  Sender: FDA-Public Use
  Company Number: None

PATIENT
  Age: 49 Year
  Sex: Male
  Weight: 88.2 kg

DRUGS (11)
  1. AXICABTAGENE CILOLEUCEL [Suspect]
     Active Substance: AXICABTAGENE CILOLEUCEL
     Indication: DIFFUSE LARGE B-CELL LYMPHOMA
     Dosage: ?          OTHER FREQUENCY:ONCE;?
     Route: 041
     Dates: start: 20210601, end: 20210601
  2. FLUCONAZOLE. [Concomitant]
     Active Substance: FLUCONAZOLE
     Dates: start: 20210601, end: 20210613
  3. URSODIOL. [Concomitant]
     Active Substance: URSODIOL
     Dates: start: 20210601, end: 20210613
  4. VALACYCLOVIR [Concomitant]
     Active Substance: VALACYCLOVIR HYDROCHLORIDE
     Dates: start: 20210601, end: 20210613
  5. CAPHASOL [Concomitant]
     Dates: start: 20210601, end: 20210613
  6. LORATADINE. [Concomitant]
     Active Substance: LORATADINE
     Dates: start: 20210610, end: 20210610
  7. ALLOPURINOL. [Concomitant]
     Active Substance: ALLOPURINOL
     Dates: start: 20210601, end: 20210605
  8. NYSTATIN TRIAMCINOLONE [Concomitant]
     Dates: start: 20210608, end: 20210613
  9. CHLORHEXIDINE [Concomitant]
     Active Substance: CHLORHEXIDINE
     Dates: start: 20210601, end: 20210612
  10. MAGNESIUM OXIDE. [Concomitant]
     Active Substance: MAGNESIUM OXIDE
     Dates: start: 20210603, end: 20210603
  11. ALTEPLASE. [Concomitant]
     Active Substance: ALTEPLASE
     Dates: start: 20210612, end: 20210612

REACTIONS (1)
  - Cytokine release syndrome [None]

NARRATIVE: CASE EVENT DATE: 20210603
